FAERS Safety Report 5289173-9 (Version None)
Quarter: 2007Q1

REPORT INFORMATION
  Report Type: 
  Country: None (occurrence: None)
  Receive Date: 20070125
  Receipt Date: 20061121
  Transmission Date: 20070707
  Serious: No
  Sender: FDA-Public Use
  Company Number: 016

PATIENT
  Age: 12 Year
  Sex: Male
  Weight: 37.195 kg

DRUGS (1)
  1. INCRELEX [Suspect]
     Indication: INSULIN-LIKE GROWTH FACTOR DECREASED
     Dosage: 4.0 MG SC BID
     Route: 058
     Dates: start: 20061025

REACTIONS (1)
  - URTICARIA [None]
